FAERS Safety Report 13710384 (Version 1)
Quarter: 2017Q2

REPORT INFORMATION
  Report Type: Spontaneous
  Country: US (occurrence: US)
  Receive Date: 20170630
  Receipt Date: 20170630
  Transmission Date: 20170830
  Serious: Yes (Hospitalization)
  Sender: FDA-Public Use
  Company Number: None

PATIENT
  Age: 50 Year
  Sex: Female
  Weight: 63 kg

DRUGS (1)
  1. KLONOPIN [Suspect]
     Active Substance: CLONAZEPAM
     Indication: SLEEP DISORDER
     Dates: start: 20100101, end: 20120801

REACTIONS (10)
  - Photophobia [None]
  - Hyperacusis [None]
  - Amnesia [None]
  - Paraesthesia [None]
  - Diplopia [None]
  - Hypoaesthesia [None]
  - Fatigue [None]
  - Migraine [None]
  - Hyperaesthesia [None]
  - Cognitive disorder [None]

NARRATIVE: CASE EVENT DATE: 20120601
